FAERS Safety Report 5741061-7 (Version None)
Quarter: 2008Q2

REPORT INFORMATION
  Report Type: 
  Country: None (occurrence: None)
  Receive Date: 20080516
  Receipt Date: 20080505
  Transmission Date: 20081010
  Serious: Yes (Other)
  Sender: FDA-Public Use
  Company Number: GB-PFIZER INC-2008039734

PATIENT
  Age: 55 Year
  Sex: Female

DRUGS (2)
  1. CHANTIX [Suspect]
     Indication: SMOKING CESSATION THERAPY
     Route: 048
     Dates: start: 20080327, end: 20080410
  2. LEVOTHYROXINE SODIUM [Concomitant]
     Route: 048

REACTIONS (3)
  - COUGH [None]
  - DEPRESSION [None]
  - DYSPEPSIA [None]
